FAERS Safety Report 13702623 (Version 4)
Quarter: 2017Q3

REPORT INFORMATION
  Report Type: Spontaneous
  Country: JP (occurrence: JP)
  Receive Date: 20170629
  Receipt Date: 20170901
  Transmission Date: 20171127
  Serious: Yes (Life-Threatening, Hospitalization)
  Sender: FDA-Public Use
  Company Number: PHJP2017JP021126

PATIENT
  Age: 47 Year
  Sex: Male
  Weight: 81 kg

DRUGS (11)
  1. PYRETHIA [Suspect]
     Active Substance: PROMETHAZINE HYDROCHLORIDE
     Indication: PRODUCT USED FOR UNKNOWN INDICATION
     Dosage: 25 MG, QD (BEFORE SLEEP)
     Route: 048
     Dates: end: 20170626
  2. TEGRETOL [Suspect]
     Active Substance: CARBAMAZEPINE
     Indication: EPILEPSY
     Dosage: 200 MG, BID
     Route: 048
     Dates: end: 20170626
  3. SENNOSIDE A+B [Suspect]
     Active Substance: SENNOSIDES A AND B
     Indication: PRODUCT USED FOR UNKNOWN INDICATION
     Dosage: 12 MG, QD (BEFORE SLEEP)
     Route: 048
     Dates: end: 20170626
  4. HIRNAMIN [Suspect]
     Active Substance: PHENOTHIAZINE
     Dosage: 25 MG, BID
     Route: 048
     Dates: end: 20170626
  5. SEROQUEL [Suspect]
     Active Substance: QUETIAPINE FUMARATE
     Dosage: 25 MG, BID
     Route: 048
     Dates: end: 20170626
  6. MAGMITT [Concomitant]
     Active Substance: MAGNESIUM OXIDE
     Indication: PRODUCT USED FOR UNKNOWN INDICATION
     Dosage: 330 MG, TID
     Route: 048
     Dates: end: 20170626
  7. HIRNAMIN [Suspect]
     Active Substance: PHENOTHIAZINE
     Indication: PRODUCT USED FOR UNKNOWN INDICATION
     Dosage: 5 MG, QD (AFTER BREAKFAST)
     Route: 048
  8. ROHYPNOL [Suspect]
     Active Substance: FLUNITRAZEPAM
     Indication: PRODUCT USED FOR UNKNOWN INDICATION
     Dosage: 2 MG, QD (BEFORE SLEEP)
     Route: 048
     Dates: end: 20170626
  9. LINTON [Suspect]
     Active Substance: HALOPERIDOL
     Indication: PRODUCT USED FOR UNKNOWN INDICATION
     Dosage: 6 MG, BID (AFTER BREAKFAST AND DINNER)
     Route: 048
     Dates: end: 20170626
  10. SEROQUEL [Suspect]
     Active Substance: QUETIAPINE FUMARATE
     Indication: PRODUCT USED FOR UNKNOWN INDICATION
     Dosage: 100 MG, TID
     Route: 048
  11. ARTANE [Suspect]
     Active Substance: TRIHEXYPHENIDYL HYDROCHLORIDE
     Indication: PRODUCT USED FOR UNKNOWN INDICATION
     Dosage: 2 MG, TID
     Route: 048
     Dates: end: 20170626

REACTIONS (28)
  - Pain [Unknown]
  - Alanine aminotransferase increased [Unknown]
  - Pain in extremity [Unknown]
  - Discoloured vomit [Unknown]
  - Blood urea increased [Unknown]
  - Constipation [Unknown]
  - Rhabdomyolysis [Recovering/Resolving]
  - Neuroleptic malignant syndrome [Recovering/Resolving]
  - Dysstasia [Unknown]
  - Blood creatinine increased [Unknown]
  - Blood uric acid increased [Unknown]
  - Acute kidney injury [Recovering/Resolving]
  - Blood creatine phosphokinase increased [Unknown]
  - Nausea [Unknown]
  - Aspartate aminotransferase increased [Unknown]
  - Abnormal behaviour [Unknown]
  - Dysphagia [Unknown]
  - Myoglobin blood increased [Unknown]
  - Glomerular filtration rate decreased [Unknown]
  - Dysuria [Unknown]
  - Urine output decreased [Unknown]
  - Asthenia [Unknown]
  - Blood lactate dehydrogenase increased [Unknown]
  - Blood potassium increased [Unknown]
  - Myoglobin urine present [Unknown]
  - Chromaturia [Unknown]
  - Vomiting [Unknown]
  - Blood sodium decreased [Unknown]

NARRATIVE: CASE EVENT DATE: 20170622
